FAERS Safety Report 6453819-X (Version None)
Quarter: 2009Q4

REPORT INFORMATION
  Report Type: 
  Country: None (occurrence: None)
  Receive Date: 20091123
  Receipt Date: 20091123
  Transmission Date: 20100525
  Serious: Yes (Other)
  Sender: FDA-Public Use
  Company Number: None

PATIENT
  Age: 88 Year
  Sex: Female
  Weight: 56.6996 kg

DRUGS (1)
  1. EXELON [Suspect]
     Indication: DEMENTIA
     Dosage: 1 CAPSULE 1 PER DAY PO, ONE CAPSULE ONLY
     Route: 048
     Dates: start: 20091116, end: 20091116

REACTIONS (6)
  - ABASIA [None]
  - ASTHENIA [None]
  - CONFUSIONAL STATE [None]
  - EATING DISORDER [None]
  - HYPERHIDROSIS [None]
  - MIXED INCONTINENCE [None]
